FAERS Safety Report 22181122 (Version 2)
Quarter: 2023Q2

REPORT INFORMATION
  Report Type: Spontaneous
  Country: US (occurrence: US)
  Receive Date: 20230406
  Receipt Date: 20230607
  Transmission Date: 20230721
  Serious: No
  Sender: FDA-Public Use
  Company Number: US-PROCTER_AND_GAMBLE-GS23035367

PATIENT
  Sex: Female
  Weight: 89.569 kg

DRUGS (1)
  1. ALUMINUM ZIRCONIUM TETRACHLOROHYDREX GLY [Suspect]
     Active Substance: ALUMINUM ZIRCONIUM TETRACHLOROHYDREX GLY
     Dosage: TWICE A DAY
     Route: 061
     Dates: start: 20230124, end: 20230209

REACTIONS (30)
  - Staphylococcal infection [Not Recovered/Not Resolved]
  - Dermatitis allergic [Unknown]
  - Furuncle [Not Recovered/Not Resolved]
  - Chest pain [Recovering/Resolving]
  - Pain [Not Recovered/Not Resolved]
  - Skin mass [Not Recovered/Not Resolved]
  - Skin burning sensation [Not Recovered/Not Resolved]
  - Dermatitis [Not Recovered/Not Resolved]
  - Subcutaneous abscess [Not Recovered/Not Resolved]
  - Acne [Not Recovered/Not Resolved]
  - Skin irritation [Not Recovered/Not Resolved]
  - Skin swelling [Not Recovered/Not Resolved]
  - Skin induration [Recovering/Resolving]
  - Soft tissue swelling [Not Recovered/Not Resolved]
  - Cellulitis [Not Recovered/Not Resolved]
  - Skin discomfort [Not Recovered/Not Resolved]
  - Purulent discharge [Recovering/Resolving]
  - Rash [Unknown]
  - Erythema [Unknown]
  - Skin hyperpigmentation [Unknown]
  - Pruritus [Unknown]
  - Dermal cyst [Unknown]
  - Blood pressure increased [Unknown]
  - Tachycardia [Unknown]
  - Ultrasound scan abnormal [Unknown]
  - Dyspnoea [Recovering/Resolving]
  - Abscess soft tissue [Not Recovered/Not Resolved]
  - Skin lesion [Unknown]
  - Skin haemorrhage [Not Recovered/Not Resolved]
  - Skin discolouration [Unknown]

NARRATIVE: CASE EVENT DATE: 20230101
